FAERS Safety Report 11687461 (Version 2)
Quarter: 2017Q2

REPORT INFORMATION
  Report Type: Spontaneous
  Country: FR (occurrence: FR)
  Receive Date: 20151030
  Receipt Date: 20170626
  Transmission Date: 20170829
  Serious: Yes (Other)
  Sender: FDA-Public Use
  Company Number: FR-SEPTODONT-201503056

PATIENT
  Age: 44 Year
  Sex: Female
  Weight: 65 kg

DRUGS (4)
  1. SEPTANEST 40 MG/ML ADR?NALIN?E AU 1/100.000 [Suspect]
     Active Substance: ARTICAINE HYDROCHLORIDE\EPINEPHRINE BITARTRATE
     Indication: LOCAL ANAESTHESIA
     Route: 004
     Dates: start: 20090929, end: 201407
  2. GRANUDOXY [Concomitant]
     Indication: ACNE
  3. DEPAKINE CHRONO [Concomitant]
     Active Substance: VALPROATE SODIUM
     Indication: EPILEPSY
  4. ATARAX [Concomitant]
     Active Substance: HYDROXYZINE HYDROCHLORIDE

REACTIONS (5)
  - Tachycardia [Recovered/Resolved]
  - Depressed level of consciousness [Unknown]
  - Presyncope [Recovered/Resolved]
  - Presyncope [Recovered/Resolved]
  - Tachycardia [Recovered/Resolved]

NARRATIVE: CASE EVENT DATE: 20090929
